FAERS Safety Report 9530718 (Version 1)
Quarter: 2013Q3

REPORT INFORMATION
  Report Type: Spontaneous
  Country: US (occurrence: None)
  Receive Date: 20130916
  Receipt Date: 20130916
  Transmission Date: 20140515
  Serious: Yes (Other)
  Sender: FDA-Public Use
  Company Number: None

PATIENT
  Age: 44 Year
  Sex: Female

DRUGS (1)
  1. ATRIPLA [Suspect]
     Dosage: 1 TABLET
     Route: 048
     Dates: start: 20120503

REACTIONS (1)
  - Abdominal pain [None]
